FAERS Safety Report 10043479 (Version 2)
Quarter: 2014Q1

REPORT INFORMATION
  Report Type: Spontaneous
  Country: US (occurrence: US)
  Receive Date: 20140328
  Receipt Date: 20140328
  Transmission Date: 20141002
  Serious: Yes (Disabling)
  Sender: FDA-Public Use
  Company Number: US-GE HEALTHCARE MEDICAL DIAGNOSTICS-OSCN-PR-0903S-0143

PATIENT
  Age: 48 Year
  Sex: Male

DRUGS (9)
  1. OMNISCAN [Suspect]
     Indication: PRODUCT USED FOR UNKNOWN INDICATION
     Route: 042
     Dates: start: 20020801, end: 20020801
  2. OMNISCAN [Suspect]
     Route: 042
     Dates: start: 20030204, end: 20030204
  3. OMNISCAN [Suspect]
     Route: 042
     Dates: start: 20040510, end: 20040510
  4. OMNISCAN [Suspect]
     Route: 042
     Dates: start: 20041102, end: 20041102
  5. OMNISCAN [Suspect]
     Route: 042
     Dates: start: 20050505, end: 20050505
  6. OMNISCAN [Suspect]
     Route: 042
     Dates: start: 20051129, end: 20051129
  7. OMNISCAN [Suspect]
     Route: 042
     Dates: start: 20060522, end: 20060522
  8. MAGNEVIST [Suspect]
     Indication: PRODUCT USED FOR UNKNOWN INDICATION
     Route: 042
     Dates: start: 20020122, end: 20020122
  9. EPOGEN [Concomitant]

REACTIONS (1)
  - Nephrogenic systemic fibrosis [Not Recovered/Not Resolved]
